FAERS Safety Report 21189732 (Version 1)
Quarter: 2022Q3

REPORT INFORMATION
  Report Type: 
  Country: US (occurrence: US)
  Receive Date: 20220809
  Receipt Date: 20220809
  Transmission Date: 20221027
  Serious: Yes (Hospitalization, Other)
  Sender: FDA-Public Use
  Company Number: US-MannKind Corporation-2022MK000261

PATIENT
  Age: 54 Year
  Sex: Male

DRUGS (3)
  1. AFREZZA [Suspect]
     Active Substance: INSULIN HUMAN
     Indication: Product used for unknown indication
     Dosage: WITH MEALS
     Dates: start: 20220531, end: 20220709
  2. AFREZZA [Suspect]
     Active Substance: INSULIN HUMAN
     Dosage: WITH MEALS
     Dates: start: 20220713
  3. NOVOLOG MIX 70/30 [Concomitant]
     Active Substance: INSULIN ASPART
     Indication: Product used for unknown indication

REACTIONS (2)
  - Cerebrovascular accident [Recovered/Resolved]
  - Cough [Not Recovered/Not Resolved]

NARRATIVE: CASE EVENT DATE: 20220709
